FAERS Safety Report 9500925 (Version 1)
Quarter: 2013Q3

REPORT INFORMATION
  Report Type: Spontaneous
  Country: US (occurrence: US)
  Receive Date: 20130905
  Receipt Date: 20130905
  Transmission Date: 20140515
  Serious: No
  Sender: FDA-Public Use
  Company Number: US-BAYER-2013-106511

PATIENT
  Sex: Female

DRUGS (1)
  1. MIRENA [Suspect]
     Dosage: 20 MCG/24HR, CONT
     Route: 015
     Dates: start: 20130829

REACTIONS (6)
  - Abdominal pain lower [None]
  - Pain [None]
  - Discomfort [None]
  - Tremor [None]
  - Hyperhidrosis [None]
  - Pelvic pain [None]
